FAERS Safety Report 5097654-6 (Version None)
Quarter: 2006Q3

REPORT INFORMATION
  Report Type: 
  Country: None (occurrence: None)
  Receive Date: 20060901
  Receipt Date: 20060815
  Transmission Date: 20061208
  Serious: Yes (Hospitalization)
  Sender: FDA-Public Use
  Company Number: US200608001822

PATIENT
  Sex: Male
  Weight: 136.1 kg

DRUGS (8)
  1. ZYPREXA [Suspect]
     Dosage: SEE IMAGE
     Dates: start: 19970101, end: 20050101
  2. ZYPREXA [Suspect]
     Dosage: SEE IMAGE
     Dates: start: 20050101
  3. THIOTHIXENE [Concomitant]
  4. DIVALPROATE SODIUM (VALPROATE SEMISODIUM) [Concomitant]
  5. LEXAPRO [Concomitant]
  6. BUPROPION HCL [Concomitant]
  7. PAROXETINE HCL [Concomitant]
  8. QUETIAPINE [Concomitant]

REACTIONS (5)
  - BLOOD CHOLESTEROL ABNORMAL [None]
  - BLOOD TRIGLYCERIDES INCREASED [None]
  - DIABETES MELLITUS [None]
  - PENILE PROSTHESIS INSERTION [None]
  - PRESCRIBED OVERDOSE [None]
